FAERS Safety Report 4457615-4 (Version None)
Quarter: 2004Q3

REPORT INFORMATION
  Report Type: 
  Country: None (occurrence: None)
  Receive Date: 20040922
  Receipt Date: 20040914
  Transmission Date: 20050211
  Serious: Yes (Life-Threatening, Hospitalization, Disabling)
  Sender: FDA-Public Use
  Company Number: STA-AE-04-MTX-407

PATIENT
  Age: 79 Year
  Sex: Male

DRUGS (8)
  1. METHOTREXATE [Suspect]
     Indication: RHEUMATOID ARTHRITIS
     Dosage: 17.5 MG WEEKLY, ORAL
     Route: 048
     Dates: end: 20040819
  2. ASPRIN (ACETYLSALICYLIC ACID) [Concomitant]
  3. PREDNISOLONE [Concomitant]
  4. ROFECOXIB [Concomitant]
  5. LANSOPRAZOLE [Concomitant]
  6. AMITRIPTYLINE HCL [Concomitant]
  7. FOLIC ACID [Concomitant]
  8. GABAPENTIN [Concomitant]

REACTIONS (2)
  - CONFUSIONAL STATE [None]
  - PULMONARY FIBROSIS [None]
